FAERS Safety Report 16302815 (Version 1)
Quarter: 2019Q2

REPORT INFORMATION
  Report Type: Spontaneous
  Country: NL (occurrence: NL)
  Receive Date: 20190513
  Receipt Date: 20190513
  Transmission Date: 20190711
  Serious: Yes (Other)
  Sender: FDA-Public Use
  Company Number: NL-SA-2019SA128477

PATIENT
  Sex: Male

DRUGS (2)
  1. DUPIXENT [Suspect]
     Active Substance: DUPILUMAB
     Indication: ECZEMA
     Dosage: 600 MG, 1X
     Route: 058
     Dates: start: 20180201, end: 20180201
  2. DUPIXENT [Suspect]
     Active Substance: DUPILUMAB
     Dosage: 300 MG, 1X
     Route: 058
     Dates: start: 201802, end: 20180525

REACTIONS (4)
  - Conjunctivitis [Recovered/Resolved]
  - Corneal degeneration [Recovered/Resolved]
  - Condition aggravated [Recovered/Resolved]
  - Limbal stem cell deficiency [Recovered/Resolved]
